FAERS Safety Report 25853567 (Version 3)
Quarter: 2025Q4

REPORT INFORMATION
  Report Type: Spontaneous
  Country: CA (occurrence: CA)
  Receive Date: 20250926
  Receipt Date: 20251103
  Transmission Date: 20260118
  Serious: Yes (Death, Hospitalization, Other)
  Sender: GILEAD
  Company Number: CA-GILEAD-2025-0728412

PATIENT
  Age: 22 Year
  Sex: Female
  Weight: 140 kg

DRUGS (7)
  1. YESCARTA [Suspect]
     Active Substance: AXICABTAGENE CILOLEUCEL
     Indication: High-grade B-cell lymphoma
     Dosage: AXICABTAGENE CILOLEUCEL 2 ? 10^6 CAR-POSITIVE VIABLE T CELLS PER KG BODYWEIGHT IN 68 ML SUSPENSION
     Route: 042
     Dates: start: 20250826, end: 20250826
  2. CISPLATIN;DEXAMETHASONE;GEMCITABINE [Concomitant]
     Indication: Diffuse large B-cell lymphoma
     Dosage: UNK
     Dates: start: 20250801, end: 20250808
  3. AZITHROMYCIN [Concomitant]
     Active Substance: AZITHROMYCIN
     Dosage: UNK
     Route: 065
  4. VALACYCLOVIR [Concomitant]
     Active Substance: VALACYCLOVIR HYDROCHLORIDE
     Dosage: UNK
     Route: 065
  5. FLUCONAZOLE [Concomitant]
     Active Substance: FLUCONAZOLE
     Dosage: UNK
     Route: 065
  6. LEVETIRACETAM [Concomitant]
     Active Substance: LEVETIRACETAM
     Dosage: 750 MG, BID
     Route: 048
     Dates: start: 20250826, end: 20250831
  7. ONDANSETRON [Concomitant]
     Active Substance: ONDANSETRON
     Dosage: UNK
     Route: 065

REACTIONS (4)
  - Immune effector cell-associated neurotoxicity syndrome [Fatal]
  - Brain oedema [Fatal]
  - Brain herniation [Unknown]
  - Cytokine release syndrome [Recovered/Resolved]

NARRATIVE: CASE EVENT DATE: 20250827
